FAERS Safety Report 24698735 (Version 1)
Quarter: 2024Q4

REPORT INFORMATION
  Report Type: Spontaneous
  Country: JP (occurrence: JP)
  Receive Date: 20241205
  Receipt Date: 20241205
  Transmission Date: 20250115
  Serious: Yes (Hospitalization, Other)
  Sender: ASTELLAS
  Company Number: JP-ASTELLAS-2024-AER-021974

PATIENT
  Age: 89 Year
  Sex: Male

DRUGS (1)
  1. XTANDI [Suspect]
     Active Substance: ENZALUTAMIDE
     Indication: Product used for unknown indication
     Dosage: 80 MG PER DAY
     Route: 048

REACTIONS (5)
  - Pneumonia [Unknown]
  - Cerebral infarction [Unknown]
  - Dysphagia [Unknown]
  - Anaemia [Unknown]
  - Product prescribing issue [Unknown]
